FAERS Safety Report 7101502-X (Version None)
Quarter: 2010Q4

REPORT INFORMATION
  Report Type: 
  Country: None (occurrence: None)
  Receive Date: 20101109
  Receipt Date: 20101025
  Transmission Date: 20110411
  Serious: Yes (Death)
  Sender: FDA-Public Use
  Company Number: AMAG201000363

PATIENT
  Age: 69 Year
  Sex: Male
  Weight: 104.8 kg

DRUGS (15)
  1. FERAHEME [Suspect]
     Indication: IRON DEFICIENCY ANAEMIA
     Dosage: 510 MG, SINGLE, PUSH, INTRAVENOUS
     Route: 042
     Dates: start: 20100902, end: 20100902
  2. GLYBURIDE [Concomitant]
  3. BENICAR [Concomitant]
  4. THYROID REPLACEMENT THERAPY [Concomitant]
  5. PREVACID [Concomitant]
  6. FLONASE [Concomitant]
  7. XOPENEX [Concomitant]
  8. CLONIDINE [Concomitant]
  9. LABETALOL HCL [Concomitant]
  10. TRICOR (ADENOSINE) [Concomitant]
  11. STATIN (TIABENDAZOLE) [Concomitant]
  12. ALLOPURINOL [Concomitant]
  13. POTASSIUM CHLORIDE [Concomitant]
  14. HYDROCHLOROTHIAZIDE [Concomitant]
  15. DIURETIC [Concomitant]

REACTIONS (9)
  - AGITATION [None]
  - CARDIO-RESPIRATORY ARREST [None]
  - CHEST PAIN [None]
  - DYSPNOEA [None]
  - DYSSTASIA [None]
  - HYPOTENSION [None]
  - HYPOXIA [None]
  - OXYGEN SATURATION DECREASED [None]
  - PULMONARY EMBOLISM [None]
